FAERS Safety Report 11895922 (Version 2)
Quarter: 2016Q1

REPORT INFORMATION
  Report Type: Spontaneous
  Country: FR (occurrence: FR)
  Receive Date: 20160107
  Receipt Date: 20160330
  Transmission Date: 20160526
  Serious: Yes (Hospitalization, Other)
  Sender: FDA-Public Use
  Company Number: FR-PFIZER INC-2015423120

PATIENT
  Age: 51 Year
  Sex: Female

DRUGS (7)
  1. ACTISKENAN [Suspect]
     Active Substance: MORPHINE SULFATE
     Dosage: UNK
     Route: 048
  2. LAROXYL [Suspect]
     Active Substance: AMITRIPTYLINE
     Dosage: UNK
     Route: 048
  3. VOTRIENT [Suspect]
     Active Substance: PAZOPANIB HYDROCHLORIDE
     Dosage: 400 MG, 1X/DAY
     Route: 048
     Dates: start: 201509
  4. DUROGESIC [Suspect]
     Active Substance: FENTANYL
     Dosage: 200 DAILY
     Route: 062
  5. LYRICA [Suspect]
     Active Substance: PREGABALIN
     Dosage: UNK
     Route: 048
  6. XARELTO [Suspect]
     Active Substance: RIVAROXABAN
     Dosage: 10 MG, 1X/DAY
     Route: 048
  7. SEROPLEX [Suspect]
     Active Substance: ESCITALOPRAM OXALATE
     Dosage: 10 MG, 1X/DAY
     Route: 048

REACTIONS (9)
  - Myalgia [Not Recovered/Not Resolved]
  - Bone marrow tumour cell infiltration [Unknown]
  - Paraplegia [Unknown]
  - Pulmonary embolism [Unknown]
  - Phlebitis [Unknown]
  - Muscle spasms [Not Recovered/Not Resolved]
  - Renal failure [Unknown]
  - Dyskinesia [Recovered/Resolved]
  - Ureteric obstruction [Unknown]

NARRATIVE: CASE EVENT DATE: 20151120
